FAERS Safety Report 6590045-8 (Version None)
Quarter: 2010Q1

REPORT INFORMATION
  Report Type: 
  Country: None (occurrence: None)
  Receive Date: 20100219
  Receipt Date: 20100216
  Transmission Date: 20100710
  Serious: Yes (Death)
  Sender: FDA-Public Use
  Company Number: JP-SANOFI-AVENTIS-2009SA003252

PATIENT
  Age: 63 Year
  Sex: Female
  Weight: 59 kg

DRUGS (7)
  1. LANTUS [Suspect]
     Indication: DIABETES MELLITUS
     Dosage: DOSE:22 UNIT(S)
     Route: 058
     Dates: start: 20081020
  2. SOLOSTAR [Suspect]
     Indication: DIABETES MELLITUS
     Dates: start: 20081020
  3. PLAVIX [Concomitant]
     Indication: CEREBRAL INFARCTION
     Route: 048
  4. BLOPRESS [Concomitant]
     Indication: HYPERTENSION
     Route: 048
  5. LIPITOR [Concomitant]
     Indication: LIPIDS ABNORMAL
     Route: 048
  6. MUCOSTA [Concomitant]
     Indication: GASTRIC ULCER
     Route: 048
  7. NOVORAPID [Concomitant]
     Indication: DIABETES MELLITUS
     Dosage: TID: 7-7-10
     Route: 058
     Dates: start: 20081020

REACTIONS (1)
  - MYOCARDIAL INFARCTION [None]
